FAERS Safety Report 12123087 (Version 1)
Quarter: 2016Q1

REPORT INFORMATION
  Report Type: Other
  Country: US (occurrence: US)
  Receive Date: 20160227
  Receipt Date: 20160227
  Transmission Date: 20160526
  Serious: No
  Sender: FDA-Public Use
  Company Number: US-ACORDA-ACO_117279_2015

PATIENT
  Age: 50 Year
  Sex: Female
  Weight: 90.7 kg

DRUGS (6)
  1. BACLOFEN. [Concomitant]
     Active Substance: BACLOFEN
     Indication: PRODUCT USED FOR UNKNOWN INDICATION
     Dosage: 10 MG, UNK
     Route: 065
  2. PROZAC [Concomitant]
     Active Substance: FLUOXETINE HYDROCHLORIDE
     Indication: PRODUCT USED FOR UNKNOWN INDICATION
     Dosage: 20 MG, QOD
  3. PROZAC [Concomitant]
     Active Substance: FLUOXETINE HYDROCHLORIDE
     Dosage: 40 MG, QOD
  4. TYSABRI [Concomitant]
     Active Substance: NATALIZUMAB
     Indication: PRODUCT USED FOR UNKNOWN INDICATION
     Dosage: UNK
     Route: 065
  5. AMPYRA [Suspect]
     Active Substance: DALFAMPRIDINE
     Indication: GAIT DISTURBANCE
     Dosage: 10 MG, Q 12 HRS
     Route: 048
     Dates: start: 2010
  6. TIZANIDINE. [Suspect]
     Active Substance: TIZANIDINE
     Indication: MUSCLE SPASTICITY
     Dosage: 2 MG, 3XDAY
     Route: 048
     Dates: start: 201409

REACTIONS (2)
  - Extra dose administered [Recovered/Resolved]
  - Diarrhoea [Recovered/Resolved]

NARRATIVE: CASE EVENT DATE: 20150921
